FAERS Safety Report 6993791-7 (Version None)
Quarter: 2010Q3

REPORT INFORMATION
  Report Type: 
  Country: None (occurrence: None)
  Receive Date: 20100917
  Receipt Date: 20100614
  Transmission Date: 20110219
  Serious: No
  Sender: FDA-Public Use
  Company Number: US-ASTRAZENECA-2010SE25729

PATIENT
  Age: 37 Year
  Sex: Male
  Weight: 127 kg

DRUGS (4)
  1. SEROQUEL [Suspect]
     Dosage: 50 MG DURUNG THE DAY AND 300 MG AT NIGHT
     Route: 048
     Dates: start: 20080901, end: 20081201
  2. SEROQUEL [Suspect]
     Route: 048
     Dates: start: 20081201, end: 20100501
  3. SEROQUEL [Suspect]
     Route: 048
     Dates: start: 20100501, end: 20100501
  4. NEXIUM [Concomitant]
     Indication: DYSPEPSIA

REACTIONS (13)
  - AFFECT LABILITY [None]
  - CRYING [None]
  - DEPRESSION [None]
  - DIARRHOEA [None]
  - DIZZINESS [None]
  - DRUG DOSE OMISSION [None]
  - FEELING ABNORMAL [None]
  - HEADACHE [None]
  - INCORRECT DOSE ADMINISTERED [None]
  - INSOMNIA [None]
  - MALAISE [None]
  - NAUSEA [None]
  - WRONG TECHNIQUE IN DRUG USAGE PROCESS [None]
